FAERS Safety Report 9825721 (Version 1)
Quarter: 2013Q4

REPORT INFORMATION
  Report Type: Spontaneous
  Country: US (occurrence: None)
  Receive Date: 20131101
  Receipt Date: 20131101
  Transmission Date: 20140711
  Serious: Yes (Hospitalization)
  Sender: FDA-Public Use
  Company Number: ALL1-2013-02018

PATIENT
  Age: 12 Year
  Sex: Male
  Weight: 46.3 kg

DRUGS (1)
  1. INTUNIV [Suspect]
     Indication: ATTENTION DEFICIT/HYPERACTIVITY DISORDER
     Route: 048
     Dates: start: 20120102, end: 20120203

REACTIONS (3)
  - Hypotension [None]
  - Presyncope [None]
  - Skin discolouration [None]
